FAERS Safety Report 19202628 (Version 1)
Quarter: 2021Q2

REPORT INFORMATION
  Report Type: Spontaneous
  Country: US (occurrence: US)
  Receive Date: 20210430
  Receipt Date: 20210430
  Transmission Date: 20210717
  Serious: No
  Sender: FDA-Public Use
  Company Number: US-BAUSCH-BL-2021-012707

PATIENT
  Sex: Female
  Weight: 60.75 kg

DRUGS (2)
  1. DICLOFENAC [Concomitant]
     Active Substance: DICLOFENAC
     Indication: ARTHRITIS
  2. DICLOFENAC [Suspect]
     Active Substance: DICLOFENAC
     Indication: PRODUCT USED FOR UNKNOWN INDICATION
     Dosage: STARTED USING 8 YEARS AGO
     Route: 065
     Dates: start: 2013, end: 201304

REACTIONS (2)
  - Gastric disorder [Unknown]
  - Vomiting [Unknown]
